FAERS Safety Report 20918451 (Version 1)
Quarter: 2022Q2

REPORT INFORMATION
  Report Type: Spontaneous
  Country: US (occurrence: None)
  Receive Date: 20220603
  Receipt Date: 20220603
  Transmission Date: 20220721
  Serious: Yes (Hospitalization)
  Sender: FDA-Public Use
  Company Number: None

PATIENT
  Sex: Female

DRUGS (3)
  1. HUMIRA [Suspect]
     Active Substance: ADALIMUMAB
     Indication: Crohn^s disease
     Dosage: 40 MG/0.4ML ?INJECT 1 PEN UNDER THE SKIN (SUBCUTANEOUS  INJECTION) EVERY 14 DAYS?
     Route: 058
     Dates: start: 20180622
  2. MERCAPTOPUR [Concomitant]
  3. PENTASA [Concomitant]

REACTIONS (1)
  - Condition aggravated [None]
